FAERS Safety Report 18818366 (Version 3)
Quarter: 2021Q1

REPORT INFORMATION
  Report Type: Spontaneous
  Country: DE (occurrence: DE)
  Receive Date: 20210201
  Receipt Date: 20210225
  Transmission Date: 20210419
  Serious: Yes (Other)
  Sender: FDA-Public Use
  Company Number: NVSC2021DE021404

PATIENT
  Sex: Female

DRUGS (6)
  1. SILDENAFIL. [Suspect]
     Active Substance: SILDENAFIL
     Indication: CARDIOMYOPATHY
     Dosage: UNK
     Route: 065
  2. EPLERENONE. [Suspect]
     Active Substance: EPLERENONE
     Indication: CARDIOMYOPATHY
     Dosage: UNK
     Route: 065
  3. IVABRADINE [Suspect]
     Active Substance: IVABRADINE
     Indication: PRODUCT USED FOR UNKNOWN INDICATION
     Dosage: UNK
     Route: 065
  4. HYDROXYCARBAMIDE [Suspect]
     Active Substance: HYDROXYUREA
     Indication: THROMBOCYTOSIS
     Dosage: UNK
     Route: 065
  5. SILDENAFIL. [Suspect]
     Active Substance: SILDENAFIL
     Indication: CARDIAC FAILURE
  6. EPLERENONE. [Suspect]
     Active Substance: EPLERENONE
     Indication: CARDIAC FAILURE

REACTIONS (6)
  - Contraindicated product administered [Unknown]
  - Exposure during pregnancy [Unknown]
  - Maternal exposure during pregnancy [Unknown]
  - Product use in unapproved indication [Unknown]
  - Abortion spontaneous [Unknown]
  - Off label use [Unknown]
